FAERS Safety Report 5501247-3 (Version None)
Quarter: 2007Q4

REPORT INFORMATION
  Report Type: 
  Country: None (occurrence: None)
  Receive Date: 20071026
  Receipt Date: 20071019
  Transmission Date: 20080405
  Serious: Yes (Other)
  Sender: FDA-Public Use
  Company Number: 2007330680

PATIENT
  Age: 16 Year
  Sex: Female

DRUGS (1)
  1. LISTERINE WHITENING PRE-BRUSH RINSE (NO ACTIVE INGREDIENT) [Suspect]
     Indication: DENTAL CARE
     Dosage: 1/2 TOP OF CUP ONCE, ORAL
     Route: 048
     Dates: start: 20070907, end: 20070907

REACTIONS (6)
  - APHTHOUS STOMATITIS [None]
  - APPLICATION SITE IRRITATION [None]
  - LIP SWELLING [None]
  - MOVEMENT DISORDER [None]
  - PAIN [None]
  - STOMATITIS [None]
